FAERS Safety Report 7986244-0 (Version None)
Quarter: 2011Q4

REPORT INFORMATION
  Report Type: 
  Country: None (occurrence: None)
  Receive Date: 20111007
  Receipt Date: 20110823
  Transmission Date: 20120403
  Serious: No
  Sender: FDA-Public Use
  Company Number: 2011HGS-002447

PATIENT
  Age: 31 Year
  Sex: Female
  Weight: 55.7924 kg

DRUGS (4)
  1. BENLYSTA [Suspect]
     Indication: RHEUMATOID ARTHRITIS
     Dosage: 10 MG/KG, 1 IN 14 D, INTRAVENOUS DRIP
     Route: 041
     Dates: start: 20110613, end: 20110613
  2. BENLYSTA [Suspect]
     Indication: SYSTEMIC LUPUS ERYTHEMATOSUS
     Dosage: 10 MG/KG, 1 IN 14 D, INTRAVENOUS DRIP
     Route: 041
     Dates: start: 20110613, end: 20110613
  3. BENLYSTA [Suspect]
     Indication: ARTHRITIS
     Dosage: 10 MG/KG, 1 IN 14 D, INTRAVENOUS DRIP
     Route: 041
     Dates: start: 20110613, end: 20110613
  4. METHOTREXATE [Concomitant]

REACTIONS (4)
  - PYREXIA [None]
  - ARTHRALGIA [None]
  - COUGH [None]
  - ASTHENIA [None]
